FAERS Safety Report 16668988 (Version 2)
Quarter: 2019Q3

REPORT INFORMATION
  Report Type: Spontaneous
  Country: CN (occurrence: CN)
  Receive Date: 20190805
  Receipt Date: 20190917
  Transmission Date: 20191004
  Serious: Yes (Other)
  Sender: FDA-Public Use
  Company Number: CN-BAYER-2019-141135

PATIENT
  Age: 84 Year
  Sex: Female
  Weight: 53 kg

DRUGS (3)
  1. GLICLAZIDE [Interacting]
     Active Substance: GLICLAZIDE
     Indication: DIABETES MELLITUS
     Dosage: 60 MG, QD
     Route: 048
     Dates: start: 20190618, end: 20190701
  2. JANUVIA [Interacting]
     Active Substance: SITAGLIPTIN PHOSPHATE
     Indication: DIABETES MELLITUS
     Dosage: 100 MG, QD
     Route: 048
     Dates: start: 20190618, end: 20190629
  3. GLUCOBAY [Suspect]
     Active Substance: ACARBOSE
     Indication: DIABETES MELLITUS
     Dosage: 100 MG, TID
     Route: 048
     Dates: start: 20190618, end: 20190629

REACTIONS (3)
  - Drug interaction [None]
  - Blood glucose decreased [Recovering/Resolving]
  - Asthenia [Recovering/Resolving]

NARRATIVE: CASE EVENT DATE: 20190618
